FAERS Safety Report 6395063-0 (Version None)
Quarter: 2009Q4

REPORT INFORMATION
  Report Type: 
  Country: None (occurrence: None)
  Receive Date: 20091009
  Receipt Date: 20090928
  Transmission Date: 20100525
  Serious: Yes (Hospitalization, Other)
  Sender: FDA-Public Use
  Company Number: US-PFIZER INC-2009267586

PATIENT
  Age: 77 Year
  Sex: Female
  Weight: 101.58 kg

DRUGS (9)
  1. ZYVOX [Interacting]
     Indication: ENTEROCOCCAL INFECTION
     Dosage: UNK, Q12H
     Route: 048
     Dates: start: 20090904, end: 20090901
  2. ZYVOX [Interacting]
     Indication: PSEUDOMONAS INFECTION
  3. CLEOCIN [Suspect]
  4. GLIPIZIDE [Suspect]
  5. BENZYLPENICILLIN AND BENZYLPENICILLIN POTASSIUM AND BENZYLPENICILLIN S [Suspect]
  6. OMEPRAZOLE [Interacting]
     Dosage: 40 MG, DAILY
     Dates: start: 20090903
  7. CRANBERRY/ VITAMIN C/VITAMIN E [Interacting]
     Dosage: UNK
     Route: 048
     Dates: start: 20090907
  8. DORIPENEM [Concomitant]
     Dosage: 250 MG, 3X/DAY
     Route: 042
     Dates: start: 20090908, end: 20090910
  9. VANCOMYCIN [Concomitant]
     Dosage: 1 G, Q18H
     Dates: start: 20090908, end: 20090910

REACTIONS (4)
  - DRUG INEFFECTIVE [None]
  - DRUG INTERACTION [None]
  - HYPERSENSITIVITY [None]
  - PYREXIA [None]
